FAERS Safety Report 19770714 (Version 2)
Quarter: 2021Q3

REPORT INFORMATION
  Report Type: Spontaneous
  Country: NL (occurrence: NL)
  Receive Date: 20210831
  Receipt Date: 20210831
  Transmission Date: 20211014
  Serious: Yes (Other)
  Sender: FDA-Public Use
  Company Number: NL-SA-2021SA284503

PATIENT
  Age: 55 Year

DRUGS (4)
  1. TRIAMCINOLONE ACETONIDE. [Suspect]
     Active Substance: TRIAMCINOLONE ACETONIDE
     Dosage: 1 DF, TOTAL (2 ND INJECTION)
     Route: 014
     Dates: start: 20160826
  2. TRIAMCINOLONE ACETONIDE. [Suspect]
     Active Substance: TRIAMCINOLONE ACETONIDE
     Indication: OSTEOARTHRITIS
     Dosage: 1 DF, TOTAL (1 ST INJECTION)
     Route: 014
     Dates: start: 20160816
  3. BUPIVACAINE. [Suspect]
     Active Substance: BUPIVACAINE
     Indication: OSTEOARTHRITIS
     Dosage: 1 DF, TOTAL (1 ST INJECTION)
     Route: 014
     Dates: start: 20160816
  4. BUPIVACAINE. [Suspect]
     Active Substance: BUPIVACAINE
     Dosage: 1 DF, TOTAL (2 ND INJECTION)
     Route: 014
     Dates: start: 20160826

REACTIONS (3)
  - Staphylococcal infection [Unknown]
  - Joint swelling [Unknown]
  - Arthralgia [Unknown]

NARRATIVE: CASE EVENT DATE: 201608
